FAERS Safety Report 4676253-1 (Version None)
Quarter: 2005Q2

REPORT INFORMATION
  Report Type: 
  Country: None (occurrence: None)
  Receive Date: 20050527
  Receipt Date: 20050207
  Transmission Date: 20051028
  Serious: No
  Sender: FDA-Public Use
  Company Number: US-GLAXOSMITHKLINE-A0544251A

PATIENT
  Age: 49 Year
  Sex: Female

DRUGS (1)
  1. WELLBUTRIN XL [Suspect]
     Indication: DEPRESSION
     Dosage: 150MG PER DAY
     Route: 048
     Dates: start: 20050128

REACTIONS (4)
  - BLOOD PRESSURE INCREASED [None]
  - FEELING ABNORMAL [None]
  - TENSION HEADACHE [None]
  - THERAPEUTIC RESPONSE UNEXPECTED [None]
